FAERS Safety Report 14636799 (Version 1)
Quarter: 2018Q1

REPORT INFORMATION
  Report Type: Spontaneous
  Country: US (occurrence: US)
  Receive Date: 20180314
  Receipt Date: 20180314
  Transmission Date: 20180509
  Serious: No
  Sender: FDA-Public Use
  Company Number: US-PURDUE-USA-2018-0142732

PATIENT
  Sex: Female
  Weight: 92.97 kg

DRUGS (1)
  1. OXYCODONE/ ACETAMINOPHEN TABLETS [Suspect]
     Active Substance: ACETAMINOPHEN\OXYCODONE HYDROCHLORIDE
     Indication: PAIN
     Dosage: 1 TABLET 7.5/325 MG, TID
     Route: 048
     Dates: start: 20180207

REACTIONS (3)
  - Drug ineffective [Unknown]
  - Vomiting [Unknown]
  - Product formulation issue [Unknown]
